FAERS Safety Report 15988835 (Version 1)
Quarter: 2019Q1

REPORT INFORMATION
  Report Type: Report from Study
  Country: JP (occurrence: JP)
  Receive Date: 20190221
  Receipt Date: 20190221
  Transmission Date: 20190418
  Serious: Yes (Hospitalization, Other)
  Sender: FDA-Public Use
  Company Number: JP-ROCHE-2264680

PATIENT
  Age: 64 Year
  Sex: Female
  Weight: 51 kg

DRUGS (2)
  1. GEMZAR [Suspect]
     Active Substance: GEMCITABINE HYDROCHLORIDE
     Indication: OVARIAN CANCER
     Dosage: DAY1,8?CUM. DOSE PRIOR TO SAE:13,685
     Route: 041
     Dates: start: 20180514, end: 20180820
  2. BEVACIZUMAB. [Suspect]
     Active Substance: BEVACIZUMAB
     Indication: OVARIAN CANCER
     Dosage: DAY1?CUM. DOSE PRIOR TO SAE:3,000
     Route: 041
     Dates: start: 20180514, end: 20180820

REACTIONS (3)
  - Ileus [Recovering/Resolving]
  - Malignant ascites [Unknown]
  - Eye infection [Recovered/Resolved]

NARRATIVE: CASE EVENT DATE: 20180821
